FAERS Safety Report 21589222 (Version 1)
Quarter: 2022Q4

REPORT INFORMATION
  Report Type: Spontaneous
  Country: CN (occurrence: CN)
  Receive Date: 20221114
  Receipt Date: 20221114
  Transmission Date: 20230113
  Serious: Yes (Hospitalization)
  Sender: FDA-Public Use
  Company Number: CN-JNJFOC-20221114534

PATIENT
  Age: 60 Year
  Sex: Female

DRUGS (1)
  1. IMBRUVICA [Suspect]
     Active Substance: IBRUTINIB
     Indication: Crohn^s disease
     Route: 048
     Dates: start: 20210809, end: 20220610

REACTIONS (2)
  - Granulocyte count decreased [Recovering/Resolving]
  - Respiratory tract infection [Recovering/Resolving]
